FAERS Safety Report 5821348-X (Version None)
Quarter: 2008Q3

REPORT INFORMATION
  Report Type: 
  Country: None (occurrence: None)
  Receive Date: 20080724
  Receipt Date: 20080714
  Transmission Date: 20090109
  Serious: Yes (Hospitalization, Other)
  Sender: FDA-Public Use
  Company Number: US-MERCK-0706USA00983

PATIENT
  Age: 55 Year
  Sex: Female
  Weight: 55 kg

DRUGS (3)
  1. FOSAMAX [Suspect]
     Indication: OSTEOPOROSIS
     Route: 048
     Dates: start: 19971101
  2. FOSAMAX [Suspect]
     Route: 048
     Dates: end: 20060101
  3. INSULIN [Concomitant]
     Indication: TYPE 1 DIABETES MELLITUS
     Route: 065
     Dates: start: 19880101

REACTIONS (34)
  - ABDOMINAL PAIN [None]
  - ADVERSE DRUG REACTION [None]
  - ANXIETY [None]
  - ARTHROPATHY [None]
  - BALANCE DISORDER [None]
  - DENNIE-MORGAN FOLD [None]
  - DEPRESSION [None]
  - DRUG HYPERSENSITIVITY [None]
  - DYSGEUSIA [None]
  - FATIGUE [None]
  - FIBROMYALGIA [None]
  - GASTROINTESTINAL HAEMORRHAGE [None]
  - HEADACHE [None]
  - HYPERLIPIDAEMIA [None]
  - HYPOGEUSIA [None]
  - HYPOTENSION [None]
  - INFLAMMATORY BOWEL DISEASE [None]
  - IRRITABLE BOWEL SYNDROME [None]
  - LOOSE TOOTH [None]
  - ORAL INFECTION [None]
  - OSTEONECROSIS [None]
  - OVARIAN DISORDER [None]
  - PAIN IN EXTREMITY [None]
  - PANCREATIC CYST [None]
  - PANCREATITIS [None]
  - RHINITIS [None]
  - RHINITIS ALLERGIC [None]
  - SPINAL COLUMN STENOSIS [None]
  - TEMPOROMANDIBULAR JOINT SYNDROME [None]
  - TINNITUS [None]
  - TOOTH ABSCESS [None]
  - ULCER [None]
  - UTERINE DISORDER [None]
  - WHIPLASH INJURY [None]
